FAERS Safety Report 26068682 (Version 1)
Quarter: 2025Q4

REPORT INFORMATION
  Report Type: Spontaneous
  Country: EU (occurrence: EU)
  Receive Date: 20251120
  Receipt Date: 20251120
  Transmission Date: 20260118
  Serious: Yes (Other)
  Sender: JOHNSON AND JOHNSON
  Company Number: EU-JNJFOC-20251153246

PATIENT
  Sex: Male

DRUGS (4)
  1. GUSELKUMAB [Suspect]
     Active Substance: GUSELKUMAB
     Indication: Psoriasis
     Dosage: AT WEEK 0 THEN WEEK 4, THEN MAINTENANCE DOSE EVERY 8 WEEKS
     Route: 065
  2. GUSELKUMAB [Suspect]
     Active Substance: GUSELKUMAB
  3. GUSELKUMAB [Suspect]
     Active Substance: GUSELKUMAB
  4. GUSELKUMAB [Suspect]
     Active Substance: GUSELKUMAB

REACTIONS (3)
  - Erysipelas [Recovered/Resolved]
  - Osteoarthritis [Unknown]
  - Bursitis [Recovered/Resolved]

NARRATIVE: CASE EVENT DATE: 20250127
